FAERS Safety Report 9166734 (Version 2)
Quarter: 2013Q2

REPORT INFORMATION
  Report Type: Report from Study
  Country: AU (occurrence: AU)
  Receive Date: 20130315
  Receipt Date: 20130503
  Transmission Date: 20140414
  Serious: Yes (Hospitalization)
  Sender: FDA-Public Use
  Company Number: AU-009507513-1303AUS004205

PATIENT
  Age: 29 Year
  Sex: Male
  Weight: 85.7 kg

DRUGS (7)
  1. RIBAVIRIN [Suspect]
     Indication: HEPATITIS C
     Dosage: 1000MG/DAY
     Route: 048
     Dates: start: 20130122
  2. PEGINTERFERON ALFA-2B [Suspect]
     Indication: HIV INFECTION
     Dosage: 120 MICROGRAM, UNK
     Route: 058
     Dates: start: 20130122
  3. METHADONE HYDROCHLORIDE [Concomitant]
     Indication: DRUG DEPENDENCE
     Dosage: 110 MG, UNK
     Route: 048
     Dates: start: 20130131
  4. QUETIAPINE FUMARATE [Concomitant]
     Indication: DEPRESSION
     Dosage: 200 MG, UNK
     Route: 048
  5. QUETIAPINE FUMARATE [Concomitant]
     Indication: INSOMNIA
  6. OMEPRAZOLE [Concomitant]
     Indication: VOMITING
     Dosage: 20 MG, UNK
     Route: 048
     Dates: start: 20130131
  7. OMEPRAZOLE [Concomitant]
     Indication: NAUSEA

REACTIONS (5)
  - Lipase increased [Recovered/Resolved]
  - Vomiting [Recovered/Resolved]
  - Nausea [Recovered/Resolved]
  - Nausea [Recovering/Resolving]
  - Vomiting [Recovering/Resolving]
